FAERS Safety Report 4759432-4 (Version None)
Quarter: 2005Q3

REPORT INFORMATION
  Report Type: 
  Country: None (occurrence: None)
  Receive Date: 20050831
  Receipt Date: 20050721
  Transmission Date: 20060218
  Serious: No
  Sender: FDA-Public Use
  Company Number: RENA-11483

PATIENT
  Age: 32 Year
  Sex: Male
  Weight: 64.1 kg

DRUGS (11)
  1. RENAGEL [Suspect]
     Indication: HYPERPHOSPHATAEMIA
     Dosage: 2 TAB TID PO
     Route: 048
  2. HECTOROL [Suspect]
     Indication: HYPERPARATHYROIDISM SECONDARY
     Dosage: 2.5 MCG NA PO
     Route: 048
     Dates: start: 20000911, end: 20001121
  3. VASOTEC RPD [Concomitant]
  4. ZESTRIL [Concomitant]
  5. EPOGEN [Concomitant]
  6. LEVOXYL [Concomitant]
  7. NIFEREX [Concomitant]
  8. VITAMIN AND MINERAL PRENATAL SUPPLEMENT W/ FOLIC ACID CAP [Concomitant]
  9. REGLAN [Concomitant]
  10. ROCALTROL [Concomitant]
  11. PROZAC [Concomitant]

REACTIONS (7)
  - ASTHENIA [None]
  - BLOOD PRESSURE INADEQUATELY CONTROLLED [None]
  - FALL [None]
  - HEADACHE [None]
  - HYPERTENSION [None]
  - HYPOTONIA [None]
  - MUSCULAR WEAKNESS [None]
